FAERS Safety Report 13718728 (Version 1)
Quarter: 2017Q3

REPORT INFORMATION
  Report Type: Spontaneous
  Country: MX (occurrence: MX)
  Receive Date: 20170705
  Receipt Date: 20170705
  Transmission Date: 20171127
  Serious: Yes (Other)
  Sender: FDA-Public Use
  Company Number: MX-PFIZER INC-2017288034

PATIENT
  Age: 87 Year
  Sex: Female

DRUGS (1)
  1. LIPITOR [Suspect]
     Active Substance: ATORVASTATIN CALCIUM
     Indication: EMBOLISM
     Dosage: 80 MG, UNK

REACTIONS (2)
  - Embolism [Unknown]
  - Hypoaesthesia [Unknown]
